FAERS Safety Report 7370030-9 (Version None)
Quarter: 2011Q1

REPORT INFORMATION
  Report Type: 
  Country: None (occurrence: None)
  Receive Date: 20110318
  Receipt Date: 20110318
  Transmission Date: 20110831
  Serious: Yes (Hospitalization)
  Sender: FDA-Public Use
  Company Number: None

PATIENT
  Sex: Female
  Weight: 55 kg

DRUGS (1)
  1. NEULASTA [Suspect]
     Indication: NEUTROPENIA
     Dosage: 6MG EVERY CYCLE SQ
     Route: 058

REACTIONS (5)
  - CHILLS [None]
  - RASH GENERALISED [None]
  - FEELING OF BODY TEMPERATURE CHANGE [None]
  - CHEST PAIN [None]
  - TREMOR [None]
